FAERS Safety Report 9546922 (Version 2)
Quarter: 2014Q1

REPORT INFORMATION
  Report Type: Spontaneous
  Country: US (occurrence: None)
  Receive Date: 20130606
  Receipt Date: 20130906
  Transmission Date: 20141002
  Serious: No
  Sender: FDA-Public Use
  Company Number: 163-POMAL-13043882

PATIENT
  Age: 77 Year
  Sex: Male

DRUGS (1)
  1. POMALYST [Suspect]
     Indication: PLASMA CELL MYELOMA
     Route: 048
     Dates: start: 201302

REACTIONS (2)
  - Drug intolerance [None]
  - Adverse drug reaction [None]
